FAERS Safety Report 9849770 (Version 1)
Quarter: 2014Q1

REPORT INFORMATION
  Report Type: Spontaneous
  Country: US (occurrence: None)
  Receive Date: 20140124
  Receipt Date: 20140124
  Transmission Date: 20141002
  Serious: No
  Sender: FDA-Public Use
  Company Number: None

PATIENT
  Age: 65 Year
  Sex: Female
  Weight: 68.04 kg

DRUGS (1)
  1. ABILIFY [Suspect]
     Indication: MOOD ALTERED
     Dosage: 1 PER DAY  ONCE DAILY
     Dates: start: 201304, end: 201310

REACTIONS (5)
  - Speech disorder [None]
  - Dyskinesia [None]
  - Initial insomnia [None]
  - Incorrect dose administered [None]
  - Treatment noncompliance [None]
